FAERS Safety Report 20159617 (Version 2)
Quarter: 2022Q1

REPORT INFORMATION
  Report Type: Spontaneous
  Country: AU (occurrence: AU)
  Receive Date: 20211208
  Receipt Date: 20220128
  Transmission Date: 20220423
  Serious: Yes (Hospitalization, Other)
  Sender: FDA-Public Use
  Company Number: AU-ABBVIE-21K-008-4187277-00

PATIENT
  Age: 56 Year
  Sex: Male

DRUGS (2)
  1. HUMIRA [Suspect]
     Active Substance: ADALIMUMAB
     Indication: Product used for unknown indication
     Route: 058
  2. OZURDEX [Suspect]
     Active Substance: DEXAMETHASONE
     Indication: Sympathetic ophthalmia
     Route: 065
     Dates: start: 20210910, end: 20211026

REACTIONS (1)
  - Device dislocation [Recovered/Resolved with Sequelae]

NARRATIVE: CASE EVENT DATE: 20211018
